FAERS Safety Report 11587635 (Version 1)
Quarter: 2015Q4

REPORT INFORMATION
  Report Type: Spontaneous
  Country: US (occurrence: US)
  Receive Date: 20151001
  Receipt Date: 20151001
  Transmission Date: 20160304
  Serious: Yes (Hospitalization)
  Sender: FDA-Public Use
  Company Number: US-MYLANLABS-2015M1032323

PATIENT

DRUGS (3)
  1. LEVAQUIN [Suspect]
     Active Substance: LEVOFLOXACIN
     Indication: PROSTATITIS
     Dosage: 250 MG, QD
     Route: 042
     Dates: start: 20150915, end: 20150918
  2. GENTAMICIN. [Suspect]
     Active Substance: GENTAMICIN
     Indication: PROSTATITIS
     Dosage: UNK
     Dates: start: 20150915, end: 20150918
  3. VANCOMYCIN [Suspect]
     Active Substance: VANCOMYCIN
     Indication: PROSTATITIS
     Dosage: 1 G, QD
     Route: 042
     Dates: start: 20050915, end: 20150918

REACTIONS (1)
  - Drug effect delayed [Recovering/Resolving]

NARRATIVE: CASE EVENT DATE: 201509
